FAERS Safety Report 24231137 (Version 2)
Quarter: 2024Q3

REPORT INFORMATION
  Report Type: Spontaneous
  Country: FR (occurrence: FR)
  Receive Date: 20240821
  Receipt Date: 20240830
  Transmission Date: 20241017
  Serious: Yes (Other)
  Sender: UCB
  Company Number: None

PATIENT
  Age: 28 Year
  Sex: Female
  Weight: 78 kg

DRUGS (7)
  1. KEPPRA [Suspect]
     Active Substance: LEVETIRACETAM
     Indication: Epilepsy
     Dosage: 1500 MILLIGRAM
     Dates: end: 20240705
  2. KEPPRA [Suspect]
     Active Substance: LEVETIRACETAM
     Dosage: 500 MILLIGRAM
     Dates: start: 20240705, end: 20240807
  3. KEPPRA [Suspect]
     Active Substance: LEVETIRACETAM
     Dosage: 1500 MILLIGRAM
     Dates: start: 20240803
  4. VIMPAT [Suspect]
     Active Substance: LACOSAMIDE
     Indication: Epilepsy
     Dosage: 200 MILLIGRAM
     Dates: end: 20240705
  5. VIMPAT [Suspect]
     Active Substance: LACOSAMIDE
     Dosage: 150 MILLIGRAM
     Dates: start: 20240705, end: 20240807
  6. VIMPAT [Suspect]
     Active Substance: LACOSAMIDE
     Dosage: 200 MILLIGRAM
     Dates: start: 20240803
  7. LAMICTAL [Suspect]
     Active Substance: LAMOTRIGINE
     Indication: Epilepsy
     Dosage: 1 DOSAGE FORM
     Route: 002
     Dates: start: 20240705, end: 20240807

REACTIONS (2)
  - Epilepsy [Recovered/Resolved]
  - Therapy change [Unknown]

NARRATIVE: CASE EVENT DATE: 20240807
